FAERS Safety Report 6712660-0 (Version None)
Quarter: 2010Q2

REPORT INFORMATION
  Report Type: 
  Country: None (occurrence: None)
  Receive Date: 20100505
  Receipt Date: 20100505
  Transmission Date: 20101027
  Serious: Yes (Hospitalization)
  Sender: FDA-Public Use
  Company Number: None

PATIENT
  Age: 81 Year
  Sex: Male

DRUGS (7)
  1. PLAVIX [Suspect]
     Indication: CEREBROVASCULAR ACCIDENT
     Dosage: 1 TAB QAM PO
     Route: 048
  2. PLAVIX [Suspect]
     Indication: CORONARY ARTERY BYPASS
     Dosage: 1 TAB QAM PO
     Route: 048
  3. CATAPRES [Concomitant]
  4. COQ-10 [Concomitant]
  5. ULTRACET [Concomitant]
  6. COLACE [Concomitant]
  7. LISINOPRIL [Concomitant]

REACTIONS (1)
  - GASTROINTESTINAL HAEMORRHAGE [None]
